FAERS Safety Report 15457952 (Version 2)
Quarter: 2019Q1

REPORT INFORMATION
  Report Type: Report from Study
  Country: DE (occurrence: DE)
  Receive Date: 20181003
  Receipt Date: 20190108
  Transmission Date: 20190417
  Serious: Yes (Other)
  Sender: FDA-Public Use
  Company Number: DE-TEVA-2018-DE-960309

PATIENT
  Age: 79 Year
  Sex: Female
  Weight: 67 kg

DRUGS (20)
  1. RANITIC [Suspect]
     Active Substance: RANITIDINE HYDROCHLORIDE
     Indication: GASTRIC ULCER
     Dosage: 300 MILLIGRAM DAILY; 300 MG (DAILY DOSE), , ORAL
     Route: 048
     Dates: start: 20000218, end: 20000224
  2. DIAZEPAM. [Suspect]
     Active Substance: DIAZEPAM
     Indication: SEIZURE
     Dates: start: 20000218, end: 20000225
  3. TRAMAL [Suspect]
     Active Substance: TRAMADOL
     Indication: PAIN
     Route: 048
     Dates: start: 20000219, end: 20000223
  4. ISOSORBIDE DINITRATE. [Suspect]
     Active Substance: ISOSORBIDE DINITRATE
     Indication: CORONARY ARTERY DISEASE
     Dosage: 1 DF (DAILY DOSE), , ORAL
     Route: 048
     Dates: end: 20000218
  5. AMLODIPINE [Suspect]
     Active Substance: AMLODIPINE BESYLATE
     Dosage: 5 MILLIGRAM DAILY;
     Route: 048
     Dates: start: 20000220
  6. CORANGIN [Suspect]
     Active Substance: ISOSORBIDE MONONITRATE
     Indication: CORONARY ARTERY DISEASE
     Dosage: 1 DOSAGE FORMS DAILY;
     Route: 048
     Dates: start: 20000218, end: 20000224
  7. RIVOTRIL [Suspect]
     Active Substance: CLONAZEPAM
     Indication: SEIZURE
     Dosage: 1 MILLIGRAM DAILY;
     Dates: start: 20000224, end: 20000224
  8. TEGRETAL [Suspect]
     Active Substance: CARBAMAZEPINE
     Indication: SEIZURE
     Dosage: 600 MILLIGRAM DAILY;
     Route: 048
     Dates: start: 20000125, end: 20000224
  9. LASIX [Suspect]
     Active Substance: FUROSEMIDE
     Indication: CORONARY ARTERY DISEASE
     Dosage: 40 MILLIGRAM DAILY;
     Route: 048
     Dates: start: 20000225
  10. ISMO [Suspect]
     Active Substance: ISOSORBIDE MONONITRATE
     Indication: CORONARY ARTERY DISEASE
     Route: 048
     Dates: start: 20000225
  11. ASPIRIN 100 MG [Suspect]
     Active Substance: ASPIRIN
     Indication: CORONARY ARTERY DISEASE
     Dosage: 100 MG (DAILY DOSE), , ORAL
     Route: 048
  12. FUROSEMIDE. [Suspect]
     Active Substance: FUROSEMIDE
     Indication: OEDEMA
     Dosage: 40 MG (DAILY DOSE), , ORAL
     Route: 048
     Dates: end: 20000218
  13. AMLODIPINE [Suspect]
     Active Substance: AMLODIPINE BESYLATE
     Indication: CORONARY ARTERY DISEASE
     Dosage: 5 MG (DAILY DOSE), , ORAL
     Route: 048
  14. FURORESE [FUROSEMIDE] [Suspect]
     Active Substance: FUROSEMIDE
     Indication: OEDEMA
     Route: 048
     Dates: start: 20000218, end: 20000224
  15. PHENHYDAN [Suspect]
     Active Substance: PHENYTOIN
     Indication: SEIZURE
     Dates: start: 20000225, end: 20000226
  16. EUSAPRIM [SULFAMETHOXAZOLE,TRIMETHOPRIM] [Suspect]
     Active Substance: SULFAMETHOXAZOLE\TRIMETHOPRIM
     Indication: CYSTITIS
     Dosage: 2 DOSAGE FORMS DAILY; 2 DF (DAILY DOSE), , ORAL
     Route: 048
     Dates: start: 20000226
  17. ZANTAC [Suspect]
     Active Substance: RANITIDINE HYDROCHLORIDE
     Indication: GASTRIC ULCER
     Route: 048
     Dates: start: 20000225
  18. PARACETAMOL [Concomitant]
     Active Substance: ACETAMINOPHEN
     Indication: PAIN
     Dosage: 1000 MILLIGRAM DAILY;
     Route: 054
     Dates: start: 20000226, end: 20000226
  19. LUMINAL [Suspect]
     Active Substance: PHENOBARBITAL SODIUM
     Indication: SEIZURE
     Route: 030
     Dates: start: 20000225
  20. PHENHYDAN [Suspect]
     Active Substance: PHENYTOIN
     Indication: SEIZURE
     Route: 048
     Dates: start: 20000226, end: 20000227

REACTIONS (9)
  - Blister [Recovered/Resolved]
  - Eyelid oedema [Recovered/Resolved]
  - Conjunctivitis [Recovered/Resolved]
  - Rash macular [Recovered/Resolved]
  - Lip erosion [Recovered/Resolved]
  - Stevens-Johnson syndrome [Recovering/Resolving]
  - Erythema [Recovered/Resolved]
  - Mucosal erosion [Recovered/Resolved]
  - Pruritus generalised [Recovered/Resolved]

NARRATIVE: CASE EVENT DATE: 20000227
